FAERS Safety Report 5024354-0 (Version None)
Quarter: 2006Q2

REPORT INFORMATION
  Report Type: 
  Country: None (occurrence: None)
  Receive Date: 20060609
  Receipt Date: 20060609
  Transmission Date: 20061013
  Serious: Yes (Other)
  Sender: FDA-Public Use
  Company Number: None

PATIENT
  Age: 42 Year
  Sex: Female
  Weight: 86.637 kg

DRUGS (1)
  1. KETEK [Suspect]
     Indication: SINUSITIS
     Dosage: 400 MG 2 X ADAY PO
     Route: 048
     Dates: start: 20060525, end: 20060530

REACTIONS (2)
  - MENTAL IMPAIRMENT [None]
  - VISION BLURRED [None]
